FAERS Safety Report 16897288 (Version 1)
Quarter: 2019Q4

REPORT INFORMATION
  Report Type: Spontaneous
  Country: US (occurrence: US)
  Receive Date: 20191009
  Receipt Date: 20191009
  Transmission Date: 20200122
  Serious: Yes (Other)
  Sender: FDA-Public Use
  Company Number: US-STRIDES ARCOLAB LIMITED-2019SP009594

PATIENT
  Age: 63 Year
  Sex: Female

DRUGS (5)
  1. PROMETHAZINE HYDROCHLORIDE. [Suspect]
     Active Substance: PROMETHAZINE HYDROCHLORIDE
     Indication: MIGRAINE
     Dosage: UNK
     Route: 065
  2. VALPROATE [Interacting]
     Active Substance: VALPROIC ACID
     Indication: MIGRAINE
     Dosage: 500 MILLIGRAM
     Route: 065
  3. METHYLPREDNISOLONE. [Interacting]
     Active Substance: METHYLPREDNISOLONE
     Indication: MIGRAINE
     Dosage: UNK
     Route: 065
  4. DIHYDROERGOTAMINE MESILATE [Interacting]
     Active Substance: DIHYDROERGOTAMINE MESYLATE
     Indication: MIGRAINE
     Dosage: 0.25 MILLIGRAM
     Route: 042
  5. KETAMINE [Interacting]
     Active Substance: KETAMINE
     Indication: MIGRAINE
     Dosage: UNK, (UP TO 45 MG/HOUR) INFUSION
     Route: 042

REACTIONS (5)
  - Gait disturbance [Recovered/Resolved]
  - Visual acuity reduced [Recovered/Resolved]
  - Posterior reversible encephalopathy syndrome [Recovered/Resolved]
  - Ataxia [Recovered/Resolved]
  - Drug interaction [Unknown]
